FAERS Safety Report 24148319 (Version 2)
Quarter: 2024Q3

REPORT INFORMATION
  Report Type: Report from Study
  Country: CA (occurrence: CA)
  Receive Date: 20240729
  Receipt Date: 20240801
  Transmission Date: 20241017
  Serious: Yes (Hospitalization, Other)
  Sender: SAMSUNG BIOEPIS
  Company Number: CA-SAMSUNG BIOEPIS-SB-2024-22715

PATIENT
  Age: 24 Year
  Sex: Male

DRUGS (1)
  1. RENFLEXIS [Suspect]
     Active Substance: INFLIXIMAB-ABDA
     Indication: Colitis ulcerative
     Dosage: 5MG/KG WEEK 2-6 THEN Q8W
     Route: 042
     Dates: start: 20240621

REACTIONS (3)
  - Rectal haemorrhage [Unknown]
  - Rectal tenesmus [Unknown]
  - Off label use [Unknown]

NARRATIVE: CASE EVENT DATE: 20240718
